FAERS Safety Report 21612123 (Version 3)
Quarter: 2022Q4

REPORT INFORMATION
  Report Type: Spontaneous
  Country: US (occurrence: US)
  Receive Date: 20221118
  Receipt Date: 20221125
  Transmission Date: 20230112
  Serious: No
  Sender: FDA-Public Use
  Company Number: US-SANOFI-01363289

PATIENT
  Age: 73 Year
  Sex: Female

DRUGS (1)
  1. DUPIXENT [Suspect]
     Active Substance: DUPILUMAB
     Dosage: UNK
     Route: 065
     Dates: start: 20221027

REACTIONS (3)
  - Injection site pain [Unknown]
  - Product preparation error [Unknown]
  - Dysphonia [Unknown]

NARRATIVE: CASE EVENT DATE: 20221110
